FAERS Safety Report 12676270 (Version 1)
Quarter: 2016Q3

REPORT INFORMATION
  Report Type: Spontaneous
  Country: US (occurrence: None)
  Receive Date: 20160822
  Receipt Date: 20160822
  Transmission Date: 20161109
  Serious: Yes (Hospitalization)
  Sender: FDA-Public Use
  Company Number: None

PATIENT
  Age: 57 Year
  Sex: Female
  Weight: 55.79 kg

DRUGS (7)
  1. ATIVAN [Suspect]
     Active Substance: LORAZEPAM
     Indication: PANIC REACTION
  2. ATIVAN [Suspect]
     Active Substance: LORAZEPAM
     Indication: MUSCLE RELAXANT THERAPY
  3. GOODYS POWDER [Concomitant]
  4. ATIVAN [Suspect]
     Active Substance: LORAZEPAM
  5. SOMA [Suspect]
     Active Substance: CARISOPRODOL
     Indication: MUSCLE RELAXANT THERAPY
     Dates: end: 20160704
  6. INSULIN [Concomitant]
     Active Substance: INSULIN NOS
  7. THYROID PILLS [Concomitant]

REACTIONS (8)
  - Diabetic coma [None]
  - Product use issue [None]
  - Myocardial infarction [None]
  - Pneumonia [None]
  - Abasia [None]
  - Intestinal obstruction [None]
  - Dysphagia [None]
  - Venous thrombosis limb [None]

NARRATIVE: CASE EVENT DATE: 20160704
